FAERS Safety Report 10170629 (Version 2)
Quarter: 2014Q2

REPORT INFORMATION
  Report Type: Report from Study
  Country: US (occurrence: US)
  Receive Date: 20140514
  Receipt Date: 20140625
  Transmission Date: 20141212
  Serious: Yes (Other)
  Sender: FDA-Public Use
  Company Number: US-ROCHE-1398401

PATIENT
  Sex: Female
  Weight: 82.17 kg

DRUGS (21)
  1. NUTROPIN AQ [Suspect]
     Indication: GROWTH HORMONE DEFICIENCY
     Route: 058
  2. NUTROPIN AQ [Suspect]
     Route: 058
     Dates: end: 20140312
  3. CLONAZEPAM [Suspect]
     Indication: PRODUCT USED FOR UNKNOWN INDICATION
     Route: 048
  4. LEVOTHROID [Concomitant]
     Route: 065
  5. ROPINIROLE HYDROCHLORIDE [Concomitant]
     Route: 065
  6. LISINOPRIL [Concomitant]
     Dosage: 10-10.5MG
     Route: 065
  7. HYDROCHLOROTHIAZIDE [Concomitant]
     Dosage: 10-12.5MG
     Route: 065
  8. PROMETHAZINE HCL [Concomitant]
     Route: 065
  9. BACLOFEN [Concomitant]
     Route: 065
  10. XOPENEX [Concomitant]
     Dosage: AS REQUIRED
     Route: 065
  11. ESTRADIOL [Concomitant]
     Route: 065
  12. PYRIDIUM [Concomitant]
     Route: 065
  13. PRISTIQ [Concomitant]
     Route: 065
  14. ALLEGRA [Concomitant]
     Route: 065
  15. BUTALBITAL WITH ACETAMINOPHEN [Concomitant]
     Dosage: AS REQUIRED
     Route: 065
  16. PRAMIPEXOLE DIHYDROCHLORIDE [Concomitant]
     Route: 065
  17. ESTRING [Concomitant]
     Dosage: 1 RING EVERY 3 MONTHS
     Route: 065
     Dates: start: 20140110
  18. ESTRACE [Concomitant]
     Dosage: 0.1MG/GM
     Route: 065
  19. NEXIUM [Concomitant]
     Route: 065
  20. AMITIZA [Concomitant]
     Route: 065
  21. CREON [Concomitant]
     Dosage: 24000 UNIT
     Route: 065

REACTIONS (8)
  - Renal disorder [Unknown]
  - Impaired gastric emptying [Unknown]
  - General physical health deterioration [Unknown]
  - Multi-organ failure [Unknown]
  - Malaise [Unknown]
  - Hepatic steatosis [Unknown]
  - Glucose urine [Unknown]
  - Protein urine present [Unknown]
